FAERS Safety Report 19592643 (Version 2)
Quarter: 2021Q3

REPORT INFORMATION
  Report Type: Other
  Country: US (occurrence: US)
  Receive Date: 20210722
  Receipt Date: 20210729
  Transmission Date: 20211014
  Serious: No
  Sender: FDA-Public Use
  Company Number: US-ROCHE-2872107

PATIENT
  Sex: Female
  Weight: 78.1 kg

DRUGS (2)
  1. OCREVUS [Suspect]
     Active Substance: OCRELIZUMAB
     Indication: MULTIPLE SCLEROSIS
     Dosage: 300 MG IV DAY ONE. TWO WEEKS LATER REPEAT
     Route: 042
  2. OCREVUS [Suspect]
     Active Substance: OCRELIZUMAB
     Dosage: 600 MG IV EVERY SIX MONTHS
     Route: 042

REACTIONS (5)
  - Hypoaesthesia [Unknown]
  - Restless legs syndrome [Unknown]
  - Nasal congestion [Unknown]
  - Feeling of body temperature change [Unknown]
  - COVID-19 [Unknown]
